FAERS Safety Report 8102816-7 (Version None)
Quarter: 2012Q1

REPORT INFORMATION
  Report Type: 
  Country: None (occurrence: None)
  Receive Date: 20120201
  Receipt Date: 20120118
  Transmission Date: 20120608
  Serious: Yes (Hospitalization)
  Sender: FDA-Public Use
  Company Number: JP-MYLANLABS-2012S1001298

PATIENT
  Age: 59 Year
  Weight: 58.4 kg

DRUGS (6)
  1. NASPALUN [Suspect]
     Indication: HEPATIC NEOPLASM MALIGNANT
     Route: 041
     Dates: start: 20120116
  2. EPIRUBICIN [Suspect]
     Indication: HEPATIC NEOPLASM MALIGNANT
     Route: 013
     Dates: start: 20111012, end: 20111012
  3. IOMERON-150 [Suspect]
     Route: 013
     Dates: start: 20120111, end: 20120111
  4. IOMERON-150 [Suspect]
     Indication: HEPATIC NEOPLASM MALIGNANT
     Route: 013
     Dates: start: 20111012, end: 20111012
  5. EPIRUBICIN [Suspect]
     Route: 013
     Dates: start: 20120111, end: 20120111
  6. CEFAZOLIN [Suspect]
     Indication: POST EMBOLISATION SYNDROME
     Route: 041
     Dates: start: 20120111, end: 20120115

REACTIONS (1)
  - RENAL IMPAIRMENT [None]
